FAERS Safety Report 15786937 (Version 2)
Quarter: 2019Q1

REPORT INFORMATION
  Report Type: Spontaneous
  Country: US (occurrence: US)
  Receive Date: 20190103
  Receipt Date: 20190118
  Transmission Date: 20190417
  Serious: Yes (Other)
  Sender: FDA-Public Use
  Company Number: US-AMREGENT-20182438

PATIENT
  Sex: Female

DRUGS (2)
  1. VENOFER [Suspect]
     Active Substance: IRON SUCROSE
     Dosage: 100 MG
     Route: 042
     Dates: start: 20160108
  2. DEXFERRUM [Suspect]
     Active Substance: IRON DEXTRAN
     Dosage: UNKNOWN
     Route: 042

REACTIONS (7)
  - Swelling face [Recovered/Resolved]
  - Hypersensitivity [Unknown]
  - Ear swelling [Recovered/Resolved]
  - Autoimmune thyroiditis [Unknown]
  - Feeling abnormal [Recovered/Resolved]
  - Malaise [Recovered/Resolved]
  - Headache [Recovered/Resolved]

NARRATIVE: CASE EVENT DATE: 20160108
